FAERS Safety Report 18420322 (Version 2)
Quarter: 2021Q2

REPORT INFORMATION
  Report Type: Spontaneous
  Country: CA (occurrence: CA)
  Receive Date: 20201023
  Receipt Date: 20210628
  Transmission Date: 20210717
  Serious: Yes (Other)
  Sender: FDA-Public Use
  Company Number: CA-SAMSUNG BIOEPIS-SB-2020-32394

PATIENT
  Age: 26 Year
  Sex: Male

DRUGS (3)
  1. MIDAZOLAM. [Concomitant]
     Active Substance: MIDAZOLAM
     Indication: SEDATIVE THERAPY
     Route: 042
  2. FENTANYL. [Concomitant]
     Active Substance: FENTANYL
     Indication: SEDATIVE THERAPY
     Route: 042
  3. INFLIXIMAB [Suspect]
     Active Substance: INFLIXIMAB
     Indication: CROHN^S DISEASE
     Route: 042

REACTIONS (12)
  - Arthralgia [Unknown]
  - Anorectal swelling [Unknown]
  - Pyrexia [Unknown]
  - C-reactive protein increased [Unknown]
  - Intentional product use issue [Unknown]
  - Rectal ulcer [Unknown]
  - Respiratory symptom [Unknown]
  - Inappropriate schedule of product administration [Unknown]
  - Off label use [Unknown]
  - Anaemia [Unknown]
  - Condition aggravated [Unknown]
  - Influenza [Unknown]
